FAERS Safety Report 6768551-2 (Version None)
Quarter: 2010Q2

REPORT INFORMATION
  Report Type: 
  Country: None (occurrence: None)
  Receive Date: 20100614
  Receipt Date: 20100602
  Transmission Date: 20101027
  Serious: Yes (Life-Threatening)
  Sender: FDA-Public Use
  Company Number: JP-PFIZER INC-2010069572

PATIENT
  Age: 76 Year
  Sex: Female
  Weight: 63.7 kg

DRUGS (7)
  1. SUNITINIB MALATE [Suspect]
     Indication: METASTATIC RENAL CELL CARCINOMA
     Dosage: 37.5 MG, UNK
     Route: 048
     Dates: start: 20090717, end: 20090911
  2. THYRADIN S [Concomitant]
     Dosage: 150 UG, 1X/DAY
     Route: 048
  3. PREDNISOLONE [Concomitant]
     Dosage: 10 MG, 1X/DAY
     Route: 048
  4. PARIET [Concomitant]
     Dosage: 10 MG, 1X/DAY
     Route: 048
  5. AMLODIN OD [Concomitant]
     Dosage: 5 MG, 1X/DAY
     Route: 048
  6. ROPION [Concomitant]
     Dosage: 50 MG, AS NEEDED
     Route: 041
     Dates: start: 20090917, end: 20091010
  7. PERAPRIN [Concomitant]
     Dosage: 5 MG, 3X/DAY
     Route: 048

REACTIONS (1)
  - DUODENAL PERFORATION [None]
